FAERS Safety Report 10521504 (Version 5)
Quarter: 2015Q1

REPORT INFORMATION
  Report Type: Spontaneous
  Country: US (occurrence: US)
  Receive Date: 20141016
  Receipt Date: 20150310
  Transmission Date: 20150720
  Serious: Yes (Hospitalization)
  Sender: FDA-Public Use
  Company Number: US-ASTELLAS-2014US014746

PATIENT
  Age: 92 Year
  Sex: Male

DRUGS (2)
  1. XTANDI [Suspect]
     Active Substance: ENZALUTAMIDE
     Dosage: UNK UNK, UNKNOWN FREQ.
     Route: 065
  2. XTANDI [Suspect]
     Active Substance: ENZALUTAMIDE
     Indication: PRODUCT USED FOR UNKNOWN INDICATION
     Route: 065
     Dates: start: 20140709, end: 201411

REACTIONS (9)
  - Memory impairment [Unknown]
  - Back pain [Not Recovered/Not Resolved]
  - Asthenia [Unknown]
  - Urinary tract infection [Unknown]
  - Decreased appetite [Unknown]
  - Hospitalisation [Unknown]
  - Impaired self-care [Unknown]
  - Drug dose omission [Unknown]
  - Weight decreased [Unknown]

NARRATIVE: CASE EVENT DATE: 20140915
